FAERS Safety Report 9609483 (Version 1)
Quarter: 2013Q4

REPORT INFORMATION
  Report Type: Spontaneous
  Country: US (occurrence: None)
  Receive Date: 20131007
  Receipt Date: 20131007
  Transmission Date: 20140711
  Serious: Yes (Hospitalization)
  Sender: FDA-Public Use
  Company Number: None

PATIENT
  Age: 76 Year
  Sex: Female
  Weight: 90.7 kg

DRUGS (8)
  1. DABIGATRAN [Suspect]
     Indication: ATRIAL FIBRILLATION
     Dosage: 1 PILL
     Route: 048
  2. LISINOPRIL [Concomitant]
  3. METOPROLOL [Concomitant]
  4. SIMVASTATIN [Concomitant]
  5. ASPIRIN [Concomitant]
  6. FAMOTIDINE [Concomitant]
  7. DIPHENHYDRAMINE [Concomitant]
  8. WARFARIN [Concomitant]

REACTIONS (14)
  - Presyncope [None]
  - Constipation [None]
  - Lower gastrointestinal haemorrhage [None]
  - Haemoglobin decreased [None]
  - Renal failure acute [None]
  - Colitis ischaemic [None]
  - Diverticulitis [None]
  - Haemorrhoids [None]
  - Gastrointestinal angiodysplasia [None]
  - Gastrointestinal carcinoma [None]
  - Clostridium difficile infection [None]
  - Dehydration [None]
  - Drug clearance decreased [None]
  - International normalised ratio increased [None]
